FAERS Safety Report 6896369-9 (Version None)
Quarter: 2010Q3

REPORT INFORMATION
  Report Type: 
  Country: None (occurrence: None)
  Receive Date: 20100802
  Receipt Date: 20081231
  Transmission Date: 20110219
  Serious: No
  Sender: FDA-Public Use
  Company Number: US-PFIZER INC-2009150909

PATIENT
  Sex: Female

DRUGS (1)
  1. FLAGYL [Suspect]
     Dosage: 500 MG, 3X/DAY

REACTIONS (7)
  - ASTHENIA [None]
  - DECREASED APPETITE [None]
  - DYSPNOEA [None]
  - GENERALISED OEDEMA [None]
  - HEADACHE [None]
  - SOMNOLENCE [None]
  - URINARY TRACT INFECTION [None]
